FAERS Safety Report 18693262 (Version 7)
Quarter: 2022Q1

REPORT INFORMATION
  Report Type: Report from Study
  Country: PL (occurrence: None)
  Receive Date: 20210104
  Receipt Date: 20220212
  Transmission Date: 20220423
  Serious: Yes (Hospitalization)
  Sender: FDA-Public Use
  Company Number: PL-ROCHE-2738473

PATIENT
  Age: 50 Year
  Sex: Female
  Weight: 61 kg

DRUGS (29)
  1. OCRELIZUMAB [Suspect]
     Active Substance: OCRELIZUMAB
     Indication: Progressive multiple sclerosis
     Dosage: SUBSEQUENT DOSE DATES: 20/SEP/2018, 05/MAR/2019, 20/AUG/2019, 10/FEB/2020. DATE OF MOST RECENT DOSE
     Route: 042
     Dates: start: 20180906
  2. SERTRALINE HYDROCHLORIDE [Concomitant]
     Active Substance: SERTRALINE HYDROCHLORIDE
     Indication: Depressed mood
     Route: 048
     Dates: start: 201301
  3. BACLOFEN [Concomitant]
     Active Substance: BACLOFEN
     Route: 048
     Dates: start: 201712
  4. VITAMIN D3 [Concomitant]
     Active Substance: CHOLECALCIFEROL
     Indication: Prophylaxis
     Dosage: 2000 OTHER (J.M)
     Route: 048
  5. MYDOCALM [Concomitant]
     Route: 048
     Dates: start: 20181215
  6. CINGAL [Concomitant]
     Indication: Arthralgia
     Route: 014
     Dates: start: 20191107, end: 20191107
  7. SEDAM (POLAND) [Concomitant]
     Indication: Prophylaxis
     Route: 048
     Dates: start: 201911
  8. METHYLPREDNISOLONE [Concomitant]
     Active Substance: METHYLPREDNISOLONE
     Route: 042
     Dates: start: 20180906, end: 20180906
  9. METHYLPREDNISOLONE [Concomitant]
     Active Substance: METHYLPREDNISOLONE
     Route: 042
     Dates: start: 20180920, end: 20180920
  10. METHYLPREDNISOLONE [Concomitant]
     Active Substance: METHYLPREDNISOLONE
     Route: 042
     Dates: start: 20190305, end: 20190305
  11. METHYLPREDNISOLONE [Concomitant]
     Active Substance: METHYLPREDNISOLONE
     Route: 042
     Dates: start: 20190820, end: 20190820
  12. METHYLPREDNISOLONE [Concomitant]
     Active Substance: METHYLPREDNISOLONE
     Route: 042
     Dates: start: 20200210, end: 20200210
  13. METHYLPREDNISOLONE [Concomitant]
     Active Substance: METHYLPREDNISOLONE
     Route: 042
     Dates: start: 20200630, end: 20200630
  14. METHYLPREDNISOLONE [Concomitant]
     Active Substance: METHYLPREDNISOLONE
     Route: 042
     Dates: start: 20210217, end: 20210217
  15. METHYLPREDNISOLONE [Concomitant]
     Active Substance: METHYLPREDNISOLONE
     Route: 042
     Dates: start: 20210804, end: 20210804
  16. METHYLPREDNISOLONE [Concomitant]
     Active Substance: METHYLPREDNISOLONE
     Route: 042
     Dates: start: 20220119, end: 20220119
  17. ALERTEC [CETIRIZINE HYDROCHLORIDE] [Concomitant]
     Route: 048
     Dates: start: 20180906, end: 20180906
  18. ALERTEC [CETIRIZINE HYDROCHLORIDE] [Concomitant]
     Route: 048
     Dates: start: 20180920, end: 20180920
  19. ALERTEC [CETIRIZINE HYDROCHLORIDE] [Concomitant]
     Route: 048
     Dates: start: 20190305, end: 20190305
  20. ALERTEC [CETIRIZINE HYDROCHLORIDE] [Concomitant]
     Route: 048
     Dates: start: 20190820, end: 20190820
  21. ALERTEC [CETIRIZINE HYDROCHLORIDE] [Concomitant]
     Route: 048
     Dates: start: 20200210, end: 20200210
  22. ALERTEC [CETIRIZINE HYDROCHLORIDE] [Concomitant]
     Route: 048
     Dates: start: 20200630, end: 20200630
  23. ALERTEC [CETIRIZINE HYDROCHLORIDE] [Concomitant]
     Route: 048
     Dates: start: 20210217, end: 20210217
  24. ALERTEC [CETIRIZINE HYDROCHLORIDE] [Concomitant]
     Route: 048
     Dates: start: 20210804, end: 20210804
  25. ALERTEC [CETIRIZINE HYDROCHLORIDE] [Concomitant]
     Route: 048
     Dates: start: 20220119, end: 20220119
  26. LEVOFLOXACIN [Concomitant]
     Active Substance: LEVOFLOXACIN
     Route: 048
     Dates: start: 20201116, end: 20201117
  27. ENOXAPARIN SODIUM [Concomitant]
     Active Substance: ENOXAPARIN SODIUM
     Indication: Prophylaxis
     Route: 058
     Dates: start: 20201124, end: 20201207
  28. AZITHROMYCIN [Concomitant]
     Active Substance: AZITHROMYCIN
     Route: 048
     Dates: start: 202011, end: 202011
  29. MIRENA [Concomitant]
     Active Substance: LEVONORGESTREL
     Indication: Contraception
     Dosage: INTRA UTERINE DEVICE (IUD)
     Dates: start: 2015

REACTIONS (1)
  - Pneumonia [Recovered/Resolved]

NARRATIVE: CASE EVENT DATE: 20201018
